FAERS Safety Report 6343578-3 (Version None)
Quarter: 2009Q3

REPORT INFORMATION
  Report Type: 
  Country: None (occurrence: None)
  Receive Date: 20090904
  Receipt Date: 20090904
  Transmission Date: 20100115
  Serious: Yes (Other)
  Sender: FDA-Public Use
  Company Number: None

PATIENT
  Sex: Male
  Weight: 70.3075 kg

DRUGS (2)
  1. NIASPAN [Suspect]
     Indication: BLOOD CHOLESTEROL INCREASED
     Dosage: 1500 MG. AT BEDTIME 1 STARTED IN FALL 2006
     Dates: start: 20060101
  2. SIMVASTATIN [Suspect]
     Indication: BLOOD TRIGLYCERIDES
     Dosage: 80 MG. AT BEDTIME 1 STARTED IN FALL 2006
     Dates: start: 20060101

REACTIONS (2)
  - BURNING SENSATION [None]
  - PAIN IN EXTREMITY [None]
